FAERS Safety Report 8150882-5 (Version None)
Quarter: 2012Q1

REPORT INFORMATION
  Report Type: 
  Country: None (occurrence: None)
  Receive Date: 20120220
  Receipt Date: 20120213
  Transmission Date: 20120608
  Serious: Yes (Hospitalization)
  Sender: FDA-Public Use
  Company Number: PHHY2012KR013298

PATIENT
  Sex: Male

DRUGS (2)
  1. EXJADE [Suspect]
     Indication: IRON OVERLOAD
     Dosage: 2 DF
     Route: 048
     Dates: start: 20100629
  2. EXJADE [Suspect]
     Indication: APLASTIC ANAEMIA
     Dosage: 1 DF
     Route: 048

REACTIONS (2)
  - PRURITUS [None]
  - HEPATIC NEOPLASM MALIGNANT [None]
